FAERS Safety Report 10094556 (Version 1)
Quarter: 2014Q2

REPORT INFORMATION
  Report Type: Spontaneous
  Country: CN (occurrence: CN)
  Receive Date: 20140422
  Receipt Date: 20140422
  Transmission Date: 20141212
  Serious: Yes (Other)
  Sender: FDA-Public Use
  Company Number: CN-ABBVIE-14P-035-1228262-00

PATIENT
  Age: 17 Year
  Sex: Male

DRUGS (3)
  1. DEPAKINE CHRONO [Suspect]
     Indication: EPILEPSY
     Route: 048
     Dates: start: 2008
  2. DEPAKINE CHRONO [Suspect]
     Route: 048
  3. DEPAKINE CHRONO [Suspect]
     Route: 048

REACTIONS (4)
  - Muscle spasms [Recovered/Resolved]
  - Underdose [Recovered/Resolved]
  - Inappropriate schedule of drug administration [Recovered/Resolved]
  - Epilepsy [Recovered/Resolved]
